FAERS Safety Report 14855266 (Version 1)
Quarter: 2018Q2

REPORT INFORMATION
  Report Type: Spontaneous
  Country: US (occurrence: US)
  Receive Date: 20180507
  Receipt Date: 20180507
  Transmission Date: 20180711
  Serious: No
  Sender: FDA-Public Use
  Company Number: US-ROCHE-1952052

PATIENT
  Sex: Female
  Weight: 78.54 kg

DRUGS (1)
  1. ESBRIET [Suspect]
     Active Substance: PIRFENIDONE
     Indication: PULMONARY ARTERIAL HYPERTENSION
     Dosage: 3 CAPSULES 3XDAY
     Route: 048
     Dates: start: 20150605

REACTIONS (1)
  - Dementia Alzheimer^s type [Not Recovered/Not Resolved]
